FAERS Safety Report 10016040 (Version 1)
Quarter: 2014Q1

REPORT INFORMATION
  Report Type: Spontaneous
  Country: US (occurrence: US)
  Receive Date: 20140317
  Receipt Date: 20140317
  Transmission Date: 20141002
  Serious: Yes (Life-Threatening, Other)
  Sender: FDA-Public Use
  Company Number: US-ABBVIE-14P-163-1212472-00

PATIENT
  Age: 63 Year
  Sex: Male

DRUGS (1)
  1. ANDROGEL [Suspect]
     Indication: BLOOD TESTOSTERONE DECREASED
     Dosage: AS DIRECTED
     Dates: start: 201101, end: 201212

REACTIONS (7)
  - Myocardial infarction [Unknown]
  - Physical disability [Unknown]
  - Emotional distress [Unknown]
  - Pain [Unknown]
  - Pain [Unknown]
  - Economic problem [Unknown]
  - Economic problem [Unknown]
